FAERS Safety Report 20624499 (Version 1)
Quarter: 2022Q1

REPORT INFORMATION
  Report Type: Report from Study
  Country: CA (occurrence: CA)
  Receive Date: 20220322
  Receipt Date: 20220322
  Transmission Date: 20220423
  Serious: Yes (Other)
  Sender: FDA-Public Use
  Company Number: CA-ABBVIE-22K-028-4325901-00

PATIENT
  Age: 63 Year
  Sex: Female

DRUGS (1)
  1. SKYRIZI [Suspect]
     Active Substance: RISANKIZUMAB-RZAA
     Indication: Psoriasis
     Route: 058
     Dates: start: 20191108

REACTIONS (4)
  - Cataract [Unknown]
  - Eye disorder [Unknown]
  - Erythema [Unknown]
  - Pain of skin [Unknown]

NARRATIVE: CASE EVENT DATE: 20201101
